FAERS Safety Report 16901583 (Version 2)
Quarter: 2019Q4

REPORT INFORMATION
  Report Type: Spontaneous
  Country: JP (occurrence: JP)
  Receive Date: 20191010
  Receipt Date: 20191114
  Transmission Date: 20200122
  Serious: Yes (Other)
  Sender: FDA-Public Use
  Company Number: JP-AMGEN-JPNSP2019166186

PATIENT
  Age: 7 Decade
  Sex: Female

DRUGS (1)
  1. RANMARK [Suspect]
     Active Substance: DENOSUMAB
     Indication: PRODUCT USED FOR UNKNOWN INDICATION
     Dosage: 120 MILLIGRAM, Q4WK
     Route: 065

REACTIONS (5)
  - Hypoaesthesia [Unknown]
  - Dry mouth [Unknown]
  - Oral disorder [Unknown]
  - Cytopenia [Unknown]
  - Toothache [Unknown]
